FAERS Safety Report 24966009 (Version 1)
Quarter: 2025Q1

REPORT INFORMATION
  Report Type: Spontaneous
  Country: US (occurrence: None)
  Receive Date: 20250212
  Receipt Date: 20250212
  Transmission Date: 20250409
  Serious: Yes (Hospitalization)
  Sender: FDA-CTU
  Company Number: None

PATIENT
  Age: 69 Year
  Sex: Male

DRUGS (4)
  1. OXYCODONE AND ACETAMINOPHEN [Suspect]
     Active Substance: ACETAMINOPHEN\OXYCODONE HYDROCHLORIDE
     Indication: Pain
  2. METHADONE HYDROCHLORIDE [Suspect]
     Active Substance: METHADONE HYDROCHLORIDE
     Indication: Pain
  3. CLONAZEPAM [Suspect]
     Active Substance: CLONAZEPAM
  4. COCAINE [Suspect]
     Active Substance: COCAINE

REACTIONS (5)
  - Respiratory depression [None]
  - Sedation [None]
  - Overdose [None]
  - Unresponsive to stimuli [None]
  - Drug use disorder [None]

NARRATIVE: CASE EVENT DATE: 20250106
